FAERS Safety Report 9917052 (Version 1)
Quarter: 2014Q1

REPORT INFORMATION
  Report Type: Spontaneous
  Country: TR (occurrence: TR)
  Receive Date: 20140221
  Receipt Date: 20140221
  Transmission Date: 20141002
  Serious: Yes (Hospitalization, Other)
  Sender: FDA-Public Use
  Company Number: TR-WATSON-2014-02664

PATIENT
  Age: 14 Year
  Sex: Female

DRUGS (1)
  1. CHLORPROMAZINE HYDROCHLORIDE (WATSON LABORATORIES) [Suspect]
     Indication: STRESS
     Dosage: UNK
     Route: 065

REACTIONS (2)
  - Spasmodic dysphonia [Recovered/Resolved]
  - Intentional drug misuse [Unknown]
